FAERS Safety Report 9357378 (Version 2)
Quarter: 2013Q4

REPORT INFORMATION
  Report Type: Spontaneous
  Country: US (occurrence: None)
  Receive Date: 20130617
  Receipt Date: 20131015
  Transmission Date: 20140711
  Serious: Yes (Hospitalization)
  Sender: FDA-Public Use
  Company Number: ACO_36645_2013

PATIENT
  Age: 54 Year
  Sex: Female

DRUGS (8)
  1. AMPYRA [Suspect]
     Indication: GAIT DISTURBANCE
     Dates: start: 20130220, end: 201306
  2. AMPYRA [Suspect]
     Indication: MULTIPLE SCLEROSIS
     Dates: start: 20130220, end: 201306
  3. GILENYA [Suspect]
     Indication: MULTIPLE SCLEROSIS
     Route: 048
     Dates: start: 201106, end: 201306
  4. ZOLOFT [Concomitant]
  5. ULTRAM (TRAMADOL HYDROCHLORIDE) [Concomitant]
  6. MACRODANTIN (NITROFURANTOIN) [Concomitant]
  7. BACTRIM (SULFAMETHOXAZOLE, TRIMETHOPRIM) [Concomitant]
  8. LACTULOSE (LACTULOSE) [Concomitant]

REACTIONS (5)
  - Urinary tract infection [None]
  - Abasia [None]
  - Multiple sclerosis relapse [None]
  - Immobile [None]
  - Urinary tract infection [None]
